FAERS Safety Report 7579174-X (Version None)
Quarter: 2011Q2

REPORT INFORMATION
  Report Type: 
  Country: None (occurrence: None)
  Receive Date: 20110628
  Receipt Date: 20091009
  Transmission Date: 20111010
  Serious: Yes (Disabling, Other)
  Sender: FDA-Public Use
  Company Number: US-BAYER-200919618NA

PATIENT
  Sex: Male
  Weight: 128.35 kg

DRUGS (11)
  1. MAGNEVIST [Suspect]
     Dosage: 20 ML, ONCE
     Route: 042
     Dates: start: 20060921, end: 20060921
  2. COUMADIN [Concomitant]
  3. EPOGEN [Concomitant]
  4. TOPROL-XL [Concomitant]
  5. RENAGEL [Concomitant]
  6. MAGNEVIST [Suspect]
     Indication: NUCLEAR MAGNETIC RESONANCE IMAGING
  7. COLCHICINE [Concomitant]
  8. MAGNEVIST [Suspect]
  9. OMNISCAN [Suspect]
     Indication: ANGIOGRAM
     Dosage: UNK UNK, ONCE
     Dates: start: 20060316, end: 20060316
  10. MAGNEVIST [Suspect]
     Indication: ANGIOGRAM
     Dosage: 40 ML, ONCE
     Dates: start: 20060919, end: 20060919
  11. MAGNEVIST [Suspect]
     Dosage: 40 ML, ONCE
     Dates: start: 20060926, end: 20060926

REACTIONS (16)
  - SKIN HYPERTROPHY [None]
  - SCAR [None]
  - SKIN EXFOLIATION [None]
  - ANHEDONIA [None]
  - SWELLING [None]
  - DYSSTASIA [None]
  - INSOMNIA [None]
  - DRY SKIN [None]
  - ABASIA [None]
  - EMOTIONAL DISTRESS [None]
  - NEPHROGENIC SYSTEMIC FIBROSIS [None]
  - PRURITUS [None]
  - MOBILITY DECREASED [None]
  - PAIN [None]
  - ANXIETY [None]
  - DEFORMITY [None]
